FAERS Safety Report 5152240-4 (Version None)
Quarter: 2006Q4

REPORT INFORMATION
  Report Type: 
  Country: None (occurrence: None)
  Receive Date: 20061114
  Receipt Date: 20061114
  Transmission Date: 20070319
  Serious: Yes (Hospitalization)
  Sender: FDA-Public Use
  Company Number: None

PATIENT
  Age: 73 Year
  Sex: Female

DRUGS (5)
  1. DILTIAZEM HCL [Suspect]
     Indication: ATRIAL FIBRILLATION
     Dosage: NOT REPORTED  DAILY  PO
     Route: 048
     Dates: start: 20060414, end: 20060501
  2. WARFARIN SODIUM [Suspect]
     Indication: ATRIAL FIBRILLATION
     Dosage: NOT REPORTED  DAILY  PO
     Route: 048
     Dates: start: 20060414, end: 20060504
  3. CENTRUM [Concomitant]
  4. PROTONIX [Concomitant]
  5. CALCIUM [Concomitant]

REACTIONS (2)
  - ORAL DISCOMFORT [None]
  - RASH [None]
